FAERS Safety Report 7644018-4 (Version None)
Quarter: 2011Q3

REPORT INFORMATION
  Report Type: 
  Country: None (occurrence: None)
  Receive Date: 20110729
  Receipt Date: 20110725
  Transmission Date: 20111222
  Serious: Yes (Other)
  Sender: FDA-Public Use
  Company Number: US-PFIZER INC-2011168440

PATIENT
  Sex: Male

DRUGS (4)
  1. SUTENT [Suspect]
     Dosage: 50 MG ONCE DAILY, 28 DAYS ON AND 2 WEEKS OFF
     Route: 048
  2. PROTONIX [Concomitant]
     Dosage: 40 MG, UNK
  3. ALPRAZOLAM [Concomitant]
     Dosage: 1 MG, UNK
  4. OXYCONTIN [Concomitant]
     Dosage: 10 MG, UNK

REACTIONS (3)
  - GENERAL PHYSICAL CONDITION ABNORMAL [None]
  - DIZZINESS [None]
  - HAEMOPTYSIS [None]
